FAERS Safety Report 17004362 (Version 1)
Quarter: 2019Q4

REPORT INFORMATION
  Report Type: Spontaneous
  Country: GB (occurrence: GB)
  Receive Date: 20191107
  Receipt Date: 20191107
  Transmission Date: 20200122
  Serious: Yes (Hospitalization)
  Sender: FDA-Public Use
  Company Number: GB-009507513-1910GBR015818

PATIENT
  Age: 77 Year
  Sex: Female
  Weight: 50.7 kg

DRUGS (22)
  1. CITALOPRAM [Concomitant]
     Active Substance: CITALOPRAM HYDROBROMIDE
     Dosage: 40 MILLIGRAM, 1 DAY
  2. RIVAROXABAN [Concomitant]
     Active Substance: RIVAROXABAN
     Dosage: 20 MILLIGRAM, 1 DAY
  3. PROCHLORPERAZINE. [Concomitant]
     Active Substance: PROCHLORPERAZINE
     Dosage: THREE TIMES DAILY
  4. POLYETHYLENE GLYCOL [Concomitant]
     Active Substance: POLYETHYLENE GLYCOLS
     Dosage: 1 DOSAGE FORM, SACHET
  5. IBUPROFEN. [Concomitant]
     Active Substance: IBUPROFEN
     Dosage: UP TO 3-4 TIMES/DAY
  6. AMITRIPTYLINE HYDROCHLORIDE. [Concomitant]
     Active Substance: AMITRIPTYLINE HYDROCHLORIDE
     Dosage: AT NIGHT. ACUTE
     Dates: start: 20190917
  7. SIMVASTATIN. [Suspect]
     Active Substance: SIMVASTATIN
     Indication: CARDIOVASCULAR EVENT PROPHYLAXIS
     Dosage: AT NIGHT
     Route: 048
     Dates: start: 20180905, end: 20191013
  8. PREDNISOLONE. [Suspect]
     Active Substance: PREDNISOLONE
     Indication: CHRONIC OBSTRUCTIVE PULMONARY DISEASE
     Dosage: IN THE MORNING
     Route: 048
     Dates: start: 20190912, end: 20191010
  9. CODEINE [Concomitant]
     Active Substance: CODEINE
     Dosage: 30-60MG FOUR TIMES DAILY.ACUTE
     Dates: start: 20190708
  10. DUORESP [Concomitant]
     Active Substance: BUDESONIDE\FORMOTEROL
     Dosage: 320/9
     Route: 055
  11. SPIRIVA [Concomitant]
     Active Substance: TIOTROPIUM BROMIDE MONOHYDRATE
     Dosage: 2 DOSAGE FORM, 1 DAY
     Route: 055
  12. FORTISIP [Concomitant]
     Active Substance: CARBOHYDRATES\FATTY ACIDS\MINERALS\PROTEIN\VITAMINS
     Dosage: ACUTE, MULTIPLE ISSUES
  13. CARBOCYSTEINE [Concomitant]
     Active Substance: CARBOCYSTEINE
     Dosage: 1500 MILLIGRAM, 1 DAY
  14. ACIDEX (CALCIUM CARBONATE (+) SODIUM ALGINATE (+) SODIUM BICARBONATE) [Concomitant]
     Active Substance: CALCIUM CARBONATE\SODIUM ALGINATE\SODIUM BICARBONATE
     Dosage: 10-20ML AFTER MEALS AND AT NIGHT
  15. OMEPRAZOLE. [Concomitant]
     Active Substance: OMEPRAZOLE
     Dosage: 80 MILLIGRAM, 1 DAY
  16. CHLORPHENAMINE [Concomitant]
     Active Substance: CHLORPHENIRAMINE MALEATE
     Dosage: 4-6 HOURLY
  17. FLUCONAZOLE. [Suspect]
     Active Substance: FLUCONAZOLE
     Indication: ORAL CANDIDIASIS
     Dosage: 150 MILLIGRAM, AS NECESSARY
     Route: 048
     Dates: start: 20191007, end: 20191008
  18. CIPROFLOXACIN. [Suspect]
     Active Substance: CIPROFLOXACIN
     Indication: CHRONIC OBSTRUCTIVE PULMONARY DISEASE
     Dosage: 1500 MILLIGRAM, 1 DAY
     Route: 048
     Dates: start: 20190912, end: 20191010
  19. MEBEVERINE [Concomitant]
     Active Substance: MEBEVERINE
     Dosage: THREE TIMES DAILY
  20. AZITHROMYCIN ANHYDROUS. [Concomitant]
     Active Substance: AZITHROMYCIN ANHYDROUS
     Dosage: MONDAY, WEDNESDAY, FRIDAY. 200MG/5ML
  21. VENTOLIN [Concomitant]
     Active Substance: ALBUTEROL SULFATE
     Dosage: 2 DOSAGE FORM, INHALER
  22. TRAMADOL HYDROCHLORIDE. [Concomitant]
     Active Substance: TRAMADOL HYDROCHLORIDE
     Dosage: 50 TO 100MG FOUR TIMES DAILY

REACTIONS (6)
  - Dyspnoea [Not Recovered/Not Resolved]
  - Pancreatitis acute [Recovering/Resolving]
  - Diarrhoea [Unknown]
  - Abdominal pain [Recovering/Resolving]
  - Drug interaction [Unknown]
  - Chest pain [Recovering/Resolving]

NARRATIVE: CASE EVENT DATE: 20191013
